FAERS Safety Report 9717051 (Version 2)
Quarter: 2015Q3

REPORT INFORMATION
  Report Type: Spontaneous
  Country: US (occurrence: US)
  Receive Date: 20131127
  Receipt Date: 20150804
  Transmission Date: 20151125
  Serious: No
  Sender: FDA-Public Use
  Company Number: US-GILEAD-2009-0020745

PATIENT
  Age: 46 Year
  Sex: Female
  Weight: 67.13 kg

DRUGS (14)
  1. CALCIUM [Concomitant]
     Active Substance: CALCIUM
  2. LETAIRIS [Suspect]
     Active Substance: AMBRISENTAN
     Indication: PULMONARY ARTERIAL HYPERTENSION
     Route: 048
     Dates: start: 20090219
  3. ACTONEL [Concomitant]
     Active Substance: RISEDRONATE SODIUM
  4. CARTIA XT [Concomitant]
     Active Substance: DILTIAZEM HYDROCHLORIDE
  5. ECOTRIN [Concomitant]
     Active Substance: ASPIRIN
  6. METOPROLOL [Concomitant]
     Active Substance: METOPROLOL
  7. LEVOTHROID [Concomitant]
     Active Substance: LEVOTHYROXINE SODIUM
  8. POTASSIUM CHLORIDE. [Concomitant]
     Active Substance: POTASSIUM CHLORIDE
  9. FUROSEMIDE. [Concomitant]
     Active Substance: FUROSEMIDE
  10. IBU [Concomitant]
     Active Substance: IBUPROFEN
  11. ALBUTEROL. [Concomitant]
     Active Substance: ALBUTEROL
  12. MULTIVITAMIN [Concomitant]
     Active Substance: VITAMINS
  13. BENADRYL [Concomitant]
     Active Substance: DIPHENHYDRAMINE HYDROCHLORIDE
  14. VITAMIN D [Concomitant]
     Active Substance: CHOLECALCIFEROL

REACTIONS (3)
  - Eye pruritus [Unknown]
  - Urticaria [Unknown]
  - Eye swelling [Unknown]
